FAERS Safety Report 13110326 (Version 1)
Quarter: 2017Q1

REPORT INFORMATION
  Report Type: Spontaneous
  Country: US (occurrence: US)
  Receive Date: 20170112
  Receipt Date: 20170112
  Transmission Date: 20170428
  Serious: No
  Sender: FDA-Public Use
  Company Number: US-ROCHE-GNE295307

PATIENT
  Age: 64 Year
  Sex: Male

DRUGS (2)
  1. D5W 1/2NS [Concomitant]
     Indication: PRODUCT USED FOR UNKNOWN INDICATION
     Dosage: 500 ML, UNK
     Route: 065
  2. ACTIVASE [Suspect]
     Active Substance: ALTEPLASE
     Indication: PERIPHERAL ARTERIAL OCCLUSIVE DISEASE
     Dosage: 50 MG, UNK
     Route: 042
     Dates: start: 20091202, end: 20091202

REACTIONS (1)
  - Product quality issue [Unknown]

NARRATIVE: CASE EVENT DATE: 20091202
